FAERS Safety Report 10409409 (Version 1)
Quarter: 2014Q3

REPORT INFORMATION
  Report Type: Spontaneous
  Country: IT (occurrence: None)
  Receive Date: 20140822
  Receipt Date: 20140822
  Transmission Date: 20150326
  Serious: Yes (Other)
  Sender: FDA-Public Use
  Company Number: 2014COR00059

PATIENT
  Age: 58 Year
  Sex: Female

DRUGS (2)
  1. CITALOPRAM (CITALOPRAM) UNKNOWN [Suspect]
     Active Substance: CITALOPRAM HYDROBROMIDE
     Indication: MAJOR DEPRESSION
     Route: 042
  2. LEVOTHYROXINE [Concomitant]
     Active Substance: LEVOTHYROXINE

REACTIONS (5)
  - Tremor [None]
  - Hypochondriasis [None]
  - Dizziness [None]
  - Pathological gambling [None]
  - Anxiety [None]
